FAERS Safety Report 22072902 (Version 2)
Quarter: 2023Q2

REPORT INFORMATION
  Report Type: Spontaneous
  Country: AR (occurrence: AR)
  Receive Date: 20230308
  Receipt Date: 20230405
  Transmission Date: 20230721
  Serious: Yes (Hospitalization, Other)
  Sender: FDA-Public Use
  Company Number: AR-UCBSA-2023011643

PATIENT
  Age: 19 Year
  Sex: Female
  Weight: 36 kg

DRUGS (11)
  1. KEPPRA [Suspect]
     Active Substance: LEVETIRACETAM
     Indication: Product used for unknown indication
     Dosage: UNK
  2. KEPPRA [Suspect]
     Active Substance: LEVETIRACETAM
     Dosage: 750 MILLIGRAM, 2X/DAY (BID) BY GASTROSTOMY
  3. KEPPRA [Suspect]
     Active Substance: LEVETIRACETAM
     Dosage: 2000 MILLIGRAM
  4. KEPPRA [Suspect]
     Active Substance: LEVETIRACETAM
     Dosage: 1500 MILLIGRAM PER DAY
  5. KEPPRA [Suspect]
     Active Substance: LEVETIRACETAM
     Dosage: 1500 MILLIGRAM, 2X/DAY (BID)
  6. KEPPRA [Suspect]
     Active Substance: LEVETIRACETAM
     Dosage: 2000 MILLIGRAM, PER DAY
  7. KEPPRA [Suspect]
     Active Substance: LEVETIRACETAM
     Dosage: 1500 MILLIGRAM PER DAY
  8. KEPPRA [Suspect]
     Active Substance: LEVETIRACETAM
     Dosage: 3000 MILLIGRAM
     Dates: start: 20220909
  9. OMEPRAZOLE [Concomitant]
     Active Substance: OMEPRAZOLE
     Indication: Product used for unknown indication
     Dosage: 40 MILLIGRAM, ONCE DAILY (QD)
  10. ENOXAPARIN [Concomitant]
     Active Substance: ENOXAPARIN
     Indication: Anticoagulant therapy
     Dosage: 40 MILLIGRAM, ONCE DAILY (QD)
     Route: 058
  11. PROPRANOLOL HYDROCHLORIDE [Concomitant]
     Active Substance: PROPRANOLOL HYDROCHLORIDE
     Indication: Hypertension
     Dosage: 10 MILLIGRAM EVERY 6 HRS

REACTIONS (13)
  - Seizure [Unknown]
  - Asphyxia [Unknown]
  - Choking [Unknown]
  - Dyspnoea [Unknown]
  - Hyperhidrosis [Unknown]
  - Weight decreased [Unknown]
  - Movement disorder [Unknown]
  - Discomfort [Unknown]
  - Blood pressure increased [Unknown]
  - Incorrect route of product administration [Unknown]
  - Wrong technique in product usage process [Unknown]
  - Incorrect dose administered [Unknown]
  - Inappropriate schedule of product administration [Unknown]
